FAERS Safety Report 16347444 (Version 1)
Quarter: 2019Q2

REPORT INFORMATION
  Report Type: Spontaneous
  Country: US (occurrence: US)
  Receive Date: 20190523
  Receipt Date: 20190523
  Transmission Date: 20190711
  Serious: Yes (Hospitalization, Other)
  Sender: FDA-Public Use
  Company Number: US-ALVOGEN-2019-ALVOGEN-099847

PATIENT
  Age: 78 Year
  Sex: Female
  Weight: 72.57 kg

DRUGS (10)
  1. LISINOPRIL. [Suspect]
     Active Substance: LISINOPRIL
     Indication: PRODUCT USED FOR UNKNOWN INDICATION
     Dosage: DAILY
     Route: 048
  2. LIDOCAINE. [Concomitant]
     Active Substance: LIDOCAINE
     Indication: VENTRICULAR FIBRILLATION
     Dosage: 2 MG PER MINUTE (GIVEN CONTINOUSLY)
     Route: 042
     Dates: start: 20181126, end: 20181126
  3. PHENYLEPHRINE [Concomitant]
     Active Substance: PHENYLEPHRINE\PHENYLEPHRINE HYDROCHLORIDE
     Indication: BLOOD PRESSURE MEASUREMENT
     Dosage: 100MCG PER MINUTE (GIVEN CONTINUOUSLY)
     Route: 042
     Dates: start: 20181126
  4. ATORVASTATIN [Concomitant]
     Active Substance: ATORVASTATIN
     Indication: PRODUCT USED FOR UNKNOWN INDICATION
     Route: 048
  5. CEFTRIAXONE. [Concomitant]
     Active Substance: CEFTRIAXONE
     Indication: URINARY TRACT INFECTION
     Route: 042
     Dates: start: 20181126
  6. CALCIUM PHOSPHATE [Concomitant]
     Active Substance: CALCIUM PHOSPHATE
     Indication: PRODUCT USED FOR UNKNOWN INDICATION
     Dosage: CALCIUM PHOSPHATE DOSAGE WAS 105MG CALCIUM WITH 120 IU VITAMIN D
     Route: 048
  7. TICAGRELOR. [Suspect]
     Active Substance: TICAGRELOR
     Indication: CORONARY ARTERIAL STENT INSERTION
     Route: 048
     Dates: start: 20181126
  8. ASPIRIN. [Concomitant]
     Active Substance: ASPIRIN
     Indication: PRODUCT USED FOR UNKNOWN INDICATION
     Route: 048
     Dates: start: 201812
  9. DOPAMINE [Concomitant]
     Active Substance: DOPAMINE\DOPAMINE HYDROCHLORIDE
     Indication: BRADYCARDIA
     Dosage: 400MG INFUSION IN 250ML AT 2MCG PER KG PER MINUTE (GIVEN CONTINOUSLY)
     Route: 042
     Dates: start: 20181126, end: 20181126
  10. FAMOTIDINE. [Concomitant]
     Active Substance: FAMOTIDINE
     Indication: STRESS ULCER
     Route: 042
     Dates: start: 20181126

REACTIONS (8)
  - Hypertension [Not Recovered/Not Resolved]
  - Ventricular fibrillation [Unknown]
  - Acute myocardial infarction [Unknown]
  - Coronary arterial stent insertion [Unknown]
  - Gastrointestinal haemorrhage [Recovered/Resolved]
  - Cardiac arrest [Unknown]
  - Myocardial infarction [Unknown]
  - Dyslipidaemia [Not Recovered/Not Resolved]

NARRATIVE: CASE EVENT DATE: 20181126
